FAERS Safety Report 17068063 (Version 4)
Quarter: 2020Q1

REPORT INFORMATION
  Report Type: Other
  Country: DE (occurrence: DE)
  Receive Date: 20191122
  Receipt Date: 20200317
  Transmission Date: 20200409
  Serious: Yes (Hospitalization, Other)
  Sender: FDA-Public Use
  Company Number: DE-CELLTRION INC.-2019DE026572

PATIENT

DRUGS (42)
  1. VINCRISTINE [Suspect]
     Active Substance: VINCRISTINE
     Dosage: 1 MG, UNK
     Route: 041
     Dates: start: 20190529, end: 20190529
  2. CYCLOPHOSPHAMIDE. [Suspect]
     Active Substance: CYCLOPHOSPHAMIDE
     Indication: DIFFUSE LARGE B-CELL LYMPHOMA
     Dosage: 1500 MG, UNK
     Route: 041
     Dates: start: 20190216, end: 20190216
  3. PREDNISONE. [Suspect]
     Active Substance: PREDNISONE
     Dosage: 500 MG, UNK
     Route: 048
     Dates: start: 20190308, end: 20190312
  4. DOXORUBICIN [Suspect]
     Active Substance: DOXORUBICIN
     Dosage: 100 MG, UNK
     Route: 041
     Dates: start: 20190418, end: 20190418
  5. PARACETAMOL [Concomitant]
     Active Substance: ACETAMINOPHEN
     Indication: PROPHYLAXIS
     Dosage: 1000 MG, UNK
     Route: 048
     Dates: start: 20190215, end: 20190716
  6. RITUXIMAB (UNKNOWN) [Suspect]
     Active Substance: RITUXIMAB
     Dosage: 750 MG, UNK
     Route: 041
     Dates: start: 20190716
  7. CYCLOPHOSPHAMIDE. [Suspect]
     Active Substance: CYCLOPHOSPHAMIDE
     Dosage: 1500 MG, UNK
     Route: 041
     Dates: start: 20190418, end: 20190418
  8. FENISTIL [Concomitant]
     Active Substance: DIMETHINDENE
     Indication: PROPHYLAXIS
     Dosage: 1 DF, UNK (AMPOULE)
     Route: 042
     Dates: start: 20190215, end: 20190716
  9. RANITIN [RANITIDINE HYDROCHLORIDE] [Concomitant]
     Indication: PROPHYLAXIS
     Dosage: 1 DF, UNK (AMPOULE)
     Route: 042
     Dates: start: 20190215, end: 20190716
  10. RITUXIMAB (UNKNOWN) [Suspect]
     Active Substance: RITUXIMAB
     Dosage: 750 MG, UNK
     Route: 041
     Dates: start: 20190417, end: 20190417
  11. VINCRISTINE [Suspect]
     Active Substance: VINCRISTINE
     Indication: DIFFUSE LARGE B-CELL LYMPHOMA
     Dosage: 2MG, UNK
     Route: 041
     Dates: start: 20190216, end: 20190216
  12. CYCLOPHOSPHAMIDE. [Suspect]
     Active Substance: CYCLOPHOSPHAMIDE
     Dosage: 1500 MG, UNK
     Route: 041
     Dates: start: 20190329, end: 20190329
  13. CYCLOPHOSPHAMIDE. [Suspect]
     Active Substance: CYCLOPHOSPHAMIDE
     Dosage: 1200 MG, UNK
     Route: 041
     Dates: start: 20190529, end: 20190529
  14. DEXAMETHASON [DEXAMETHASONE] [Concomitant]
     Active Substance: DEXAMETHASONE
     Indication: PROPHYLAXIS
     Dosage: UNK
     Route: 042
     Dates: start: 20190215, end: 20190716
  15. RITUXIMAB (UNKNOWN) [Suspect]
     Active Substance: RITUXIMAB
     Dosage: 750 MG, UNK
     Route: 041
     Dates: start: 20190307, end: 20190307
  16. CYCLOPHOSPHAMIDE. [Suspect]
     Active Substance: CYCLOPHOSPHAMIDE
     Dosage: 1500 MG, UNK
     Route: 041
     Dates: start: 20190509, end: 20190509
  17. PREDNISONE. [Suspect]
     Active Substance: PREDNISONE
     Dosage: 500 MG, UNK
     Route: 048
     Dates: start: 20190329, end: 20190402
  18. PREDNISONE. [Suspect]
     Active Substance: PREDNISONE
     Dosage: 400 MG, UNK
     Route: 048
     Dates: start: 20190529, end: 20190601
  19. DOXORUBICIN [Suspect]
     Active Substance: DOXORUBICIN
     Dosage: 100 MG, UNK
     Route: 041
     Dates: start: 20190509, end: 20190509
  20. PANTOZOL [Concomitant]
     Active Substance: PANTOPRAZOLE SODIUM
     Indication: PROPHYLAXIS
     Dosage: UNK
     Route: 048
     Dates: start: 20190215
  21. FUROSEMID [Concomitant]
     Active Substance: FUROSEMIDE
     Indication: PROPHYLAXIS
     Dosage: UNK
     Route: 042
     Dates: start: 20190216, end: 20190528
  22. VINCRISTINE [Suspect]
     Active Substance: VINCRISTINE
     Dosage: 2 MG, UNK
     Route: 041
     Dates: start: 20190329, end: 20190329
  23. PREDNISONE. [Suspect]
     Active Substance: PREDNISONE
     Indication: DIFFUSE LARGE B-CELL LYMPHOMA
     Dosage: 500 MG, UNK
     Route: 048
     Dates: start: 20190216, end: 20190220
  24. PREDNISONE. [Suspect]
     Active Substance: PREDNISONE
     Dosage: 500 MG, UNK
     Route: 048
     Dates: start: 20190418, end: 20190422
  25. DOXORUBICIN [Suspect]
     Active Substance: DOXORUBICIN
     Indication: DIFFUSE LARGE B-CELL LYMPHOMA
     Dosage: 100 MG, UNK
     Route: 041
     Dates: start: 20190216, end: 20190216
  26. RITUXIMAB (UNKNOWN) [Suspect]
     Active Substance: RITUXIMAB
     Dosage: 750 MG, UNK
     Route: 041
     Dates: start: 20190528, end: 20190528
  27. RITUXIMAB (UNKNOWN) [Suspect]
     Active Substance: RITUXIMAB
     Dosage: 750 MG, UNK
     Route: 041
     Dates: start: 20190618, end: 20190618
  28. VINCRISTINE [Suspect]
     Active Substance: VINCRISTINE
     Dosage: 2 MG, UNK
     Route: 041
     Dates: start: 20190418, end: 20190418
  29. DOXORUBICIN [Suspect]
     Active Substance: DOXORUBICIN
     Dosage: 100 MG, UNK
     Route: 041
     Dates: start: 20190329, end: 20190329
  30. ALLOPURINOL. [Concomitant]
     Active Substance: ALLOPURINOL
     Indication: PROPHYLAXIS
     Dosage: UNK
     Route: 048
     Dates: start: 20190215, end: 20190823
  31. UROMITEXAN [Concomitant]
     Active Substance: MESNA
     Indication: PROPHYLAXIS
     Dosage: UNK
     Route: 048
     Dates: start: 20190216, end: 20190528
  32. ONDANSETRON [Concomitant]
     Active Substance: ONDANSETRON
     Indication: PROPHYLAXIS
     Dosage: UNK
     Route: 042
     Dates: start: 20190216, end: 20190529
  33. VINCRISTINE [Suspect]
     Active Substance: VINCRISTINE
     Dosage: 2MG, UNK
     Route: 041
     Dates: start: 20190308, end: 20190308
  34. VINCRISTINE [Suspect]
     Active Substance: VINCRISTINE
     Dosage: 2MG, UNK
     Route: 041
     Dates: start: 20190509, end: 20190509
  35. CYCLOPHOSPHAMIDE. [Suspect]
     Active Substance: CYCLOPHOSPHAMIDE
     Dosage: 1500 MG, UNK
     Route: 041
     Dates: start: 20190308, end: 20190308
  36. DOXORUBICIN [Suspect]
     Active Substance: DOXORUBICIN
     Dosage: 100 MG, UNK
     Route: 041
     Dates: start: 20190308, end: 20190308
  37. COTRIM FORTE [Concomitant]
     Active Substance: SULFAMETHOXAZOLE\TRIMETHOPRIM
     Indication: PROPHYLAXIS
     Dosage: UNK
     Route: 048
     Dates: start: 20190215, end: 20190823
  38. RITUXIMAB (UNKNOWN) [Suspect]
     Active Substance: RITUXIMAB
     Indication: DIFFUSE LARGE B-CELL LYMPHOMA
     Dosage: 750 MG, UNK
     Route: 041
     Dates: start: 20190215, end: 20190215
  39. RITUXIMAB (UNKNOWN) [Suspect]
     Active Substance: RITUXIMAB
     Dosage: 750 MG, UNK
     Route: 041
     Dates: start: 20190328, end: 20190328
  40. RITUXIMAB (UNKNOWN) [Suspect]
     Active Substance: RITUXIMAB
     Dosage: 750 MG, UNK
     Route: 041
     Dates: start: 20190508, end: 20190508
  41. DOXORUBICIN [Suspect]
     Active Substance: DOXORUBICIN
     Dosage: 80 MG, UNK
     Route: 041
     Dates: start: 20190529, end: 20190529
  42. ACICLOVIR [Concomitant]
     Active Substance: ACYCLOVIR
     Indication: PROPHYLAXIS
     Dosage: UNK
     Route: 048
     Dates: start: 20190215, end: 20190823

REACTIONS (24)
  - Thrombocytopenia [Recovered/Resolved]
  - Blood creatinine decreased [Recovered/Resolved]
  - Hypocalcaemia [Recovered/Resolved]
  - White blood cell count decreased [Recovered/Resolved]
  - Thrombocytopenia [Not Recovered/Not Resolved]
  - Hypouricaemia [Not Recovered/Not Resolved]
  - Blood immunoglobulin G decreased [Not Recovered/Not Resolved]
  - Anaemia [Recovered/Resolved]
  - Blood creatinine decreased [Not Recovered/Not Resolved]
  - Underdose [Unknown]
  - Hypokalaemia [Recovered/Resolved]
  - Anaemia [Recovered/Resolved]
  - Blood creatinine decreased [Recovered/Resolved]
  - Pleural effusion [Unknown]
  - Thrombocytopenia [Recovered/Resolved]
  - Hypertension [Recovered/Resolved]
  - Blood lactate dehydrogenase increased [Recovered/Resolved]
  - Anaemia [Recovered/Resolved]
  - Blood lactate dehydrogenase increased [Not Recovered/Not Resolved]
  - Polyneuropathy [Not Recovered/Not Resolved]
  - White blood cell count decreased [Not Recovered/Not Resolved]
  - White blood cell count decreased [Recovered/Resolved]
  - Blood creatinine decreased [Recovered/Resolved]
  - Night sweats [Recovered/Resolved]

NARRATIVE: CASE EVENT DATE: 20190304
